FAERS Safety Report 6278380-4 (Version None)
Quarter: 2009Q3

REPORT INFORMATION
  Report Type: 
  Country: None (occurrence: None)
  Receive Date: 20090720
  Receipt Date: 20090720
  Transmission Date: 20100115
  Serious: Yes (Hospitalization)
  Sender: FDA-Public Use
  Company Number: None

PATIENT
  Sex: Female
  Weight: 9.6 kg

DRUGS (1)
  1. PROPRANOLOL [Suspect]
     Indication: HAEMANGIOMA
     Dosage: 1.5 ML BID PO
     Route: 048
     Dates: start: 20090327, end: 20090716

REACTIONS (8)
  - CONVULSION [None]
  - HYPERHIDROSIS [None]
  - HYPOGLYCAEMIA [None]
  - HYPOTHERMIA [None]
  - MALAISE [None]
  - SINUS BRADYCARDIA [None]
  - TREMOR [None]
  - UNRESPONSIVE TO STIMULI [None]
